FAERS Safety Report 17025094 (Version 3)
Quarter: 2019Q4

REPORT INFORMATION
  Report Type: Spontaneous
  Country: GB (occurrence: GB)
  Receive Date: 20191113
  Receipt Date: 20191212
  Transmission Date: 20200122
  Serious: Yes (Hospitalization, Disabling, Other)
  Sender: FDA-Public Use
  Company Number: GB-AMGEN-GBRSP2019185574

PATIENT
  Age: 4 Year
  Sex: Male
  Weight: 10 kg

DRUGS (6)
  1. ARANESP [Suspect]
     Active Substance: DARBEPOETIN ALFA
     Dosage: 20 MICROGRAM
     Route: 042
     Dates: start: 20191024, end: 20191028
  2. ARANESP [Suspect]
     Active Substance: DARBEPOETIN ALFA
     Dosage: EXTRA DOSE 40 MICROGRAM
     Route: 042
     Dates: start: 20191022
  3. ARANESP [Suspect]
     Active Substance: DARBEPOETIN ALFA
     Dosage: 20 MICROGRAM, QWK
     Route: 058
     Dates: start: 20190923
  4. ARANESP [Suspect]
     Active Substance: DARBEPOETIN ALFA
     Dosage: 20 MICROGRAM
     Route: 058
     Dates: start: 20190920
  5. ARANESP [Suspect]
     Active Substance: DARBEPOETIN ALFA
     Dosage: EXTRA DOSE 30MICROGRAM
     Route: 058
     Dates: start: 20191007
  6. ARANESP [Suspect]
     Active Substance: DARBEPOETIN ALFA
     Indication: END STAGE RENAL DISEASE
     Dosage: 10 MICROGRAM
     Route: 042
     Dates: start: 20190822

REACTIONS (2)
  - Haemoglobin decreased [Not Recovered/Not Resolved]
  - Reticulocyte count decreased [Not Recovered/Not Resolved]

NARRATIVE: CASE EVENT DATE: 20191022
